FAERS Safety Report 9247824 (Version 1)
Quarter: 2013Q2

REPORT INFORMATION
  Report Type: Spontaneous
  Country: US (occurrence: None)
  Receive Date: 20130422
  Receipt Date: 20130422
  Transmission Date: 20140414
  Serious: Yes (Life-Threatening)
  Sender: FDA-Public Use
  Company Number: None

PATIENT
  Age: 84 Year
  Sex: Female
  Weight: 49.5 kg

DRUGS (13)
  1. WARFARIN [Suspect]
     Indication: AORTIC VALVE REPLACEMENT
     Dosage: 3MG  DAILY  PO
     Route: 048
  2. WARFARIN [Suspect]
     Indication: MITRAL VALVE REPLACEMENT
     Dosage: 3MG  DAILY  PO
     Route: 048
  3. LIPITOR [Concomitant]
  4. FISH OIL [Concomitant]
  5. LASIX [Concomitant]
  6. GABAPENTIN [Concomitant]
  7. GLIPIZIDE [Concomitant]
  8. VICODIN [Concomitant]
  9. LEVOXYL [Concomitant]
  10. REGLAN [Concomitant]
  11. RAMIPRIL [Concomitant]
  12. SPIRONOLACTONE [Concomitant]
  13. METOPROLOL [Concomitant]

REACTIONS (2)
  - International normalised ratio increased [None]
  - Chest pain [None]
